FAERS Safety Report 9103284 (Version 3)
Quarter: 2013Q3

REPORT INFORMATION
  Report Type: Spontaneous
  Country: US (occurrence: US)
  Receive Date: 20130219
  Receipt Date: 20130729
  Transmission Date: 20140515
  Serious: No
  Sender: FDA-Public Use
  Company Number: US-PFIZER INC-2012290942

PATIENT
  Age: 62 Year
  Sex: Female
  Weight: 81.63 kg

DRUGS (7)
  1. CELEBREX [Suspect]
     Indication: PAIN IN EXTREMITY
     Dosage: 200 MG, 2X/DAY
     Dates: start: 2010, end: 2011
  2. CELEBREX [Suspect]
     Indication: ARTHRALGIA
  3. CELEBREX [Suspect]
     Indication: ARTHRITIS
  4. CELEBREX [Suspect]
     Indication: PAIN
  5. SIMVASTATIN [Concomitant]
     Dosage: 20 MG, 1X/DAY
  6. LISINOPRIL W/HYDROCHLOROTHIAZIDE [Concomitant]
     Dosage: 10/12.5MG, 1X/DAY
  7. LIPITOR [Concomitant]
     Dosage: UNK

REACTIONS (5)
  - Migraine [Not Recovered/Not Resolved]
  - Pain in extremity [Not Recovered/Not Resolved]
  - Arthralgia [Not Recovered/Not Resolved]
  - Gait disturbance [Unknown]
  - Activities of daily living impaired [Unknown]
